FAERS Safety Report 21519064 (Version 1)
Quarter: 2022Q4

REPORT INFORMATION
  Report Type: Other
  Country: JP (occurrence: JP)
  Receive Date: 20221028
  Receipt Date: 20221028
  Transmission Date: 20230112
  Serious: Yes (Death)
  Sender: FDA-Public Use
  Company Number: JP-CHUGAI-2022042630

PATIENT
  Age: 6 Decade
  Sex: Female

DRUGS (3)
  1. AVASTIN [Suspect]
     Active Substance: BEVACIZUMAB
     Indication: Appendix cancer
     Dosage: UNK
     Route: 041
  2. XELODA [Suspect]
     Active Substance: CAPECITABINE
     Indication: Appendix cancer
     Dosage: UNK
     Route: 048
  3. OXALIPLATIN [Concomitant]
     Active Substance: OXALIPLATIN
     Indication: Appendix cancer
     Dosage: UNK
     Route: 041

REACTIONS (2)
  - Disease progression [Fatal]
  - Off label use [Unknown]
